FAERS Safety Report 4798955-9 (Version None)
Quarter: 2005Q4

REPORT INFORMATION
  Report Type: 
  Country: None (occurrence: None)
  Receive Date: 20051014
  Receipt Date: 20051004
  Transmission Date: 20060501
  Serious: Yes (Life-Threatening, Other)
  Sender: FDA-Public Use
  Company Number: JP-ABBOTT-05P-087-0312847-00

PATIENT
  Sex: Male

DRUGS (6)
  1. SEVOFLURANE [Suspect]
     Indication: GENERAL ANAESTHESIA
     Route: 055
     Dates: start: 20050808, end: 20050808
  2. NITROUS OXIDE W/ OXYGEN [Concomitant]
     Indication: GENERAL ANAESTHESIA
     Route: 055
     Dates: start: 20050808, end: 20050808
  3. OXYGEN [Concomitant]
     Indication: GENERAL ANAESTHESIA
     Route: 055
     Dates: start: 20050808, end: 20050808
  4. FENTANYL CITRATE [Concomitant]
     Indication: ANAESTHESIA
     Route: 042
     Dates: start: 20050808, end: 20050808
  5. VECURONIUM [Concomitant]
     Indication: ANAESTHESIA
     Route: 042
     Dates: start: 20050808, end: 20050808
  6. ATROPINE SULFATE [Concomitant]
     Indication: ANAESTHESIA
     Route: 042
     Dates: start: 20050808, end: 20050808

REACTIONS (4)
  - BRADYCARDIA [None]
  - EXTRASYSTOLES [None]
  - VENTRICULAR FIBRILLATION [None]
  - VENTRICULAR TACHYCARDIA [None]
